FAERS Safety Report 23516945 (Version 2)
Quarter: 2024Q1

REPORT INFORMATION
  Report Type: Spontaneous
  Country: CA (occurrence: CA)
  Receive Date: 20240213
  Receipt Date: 20240318
  Transmission Date: 20240409
  Serious: Yes (Life-Threatening, Other)
  Sender: FDA-Public Use
  Company Number: CA-GILEAD-2024-0661875

PATIENT
  Age: 70 Year
  Sex: Female
  Weight: 78 kg

DRUGS (10)
  1. VEKLURY [Suspect]
     Active Substance: REMDESIVIR
     Indication: Product used for unknown indication
     Dosage: 100 MG, QD (POWDER FOR SOLUTION INTRAVENOUS)
     Route: 042
  2. VEKLURY [Suspect]
     Active Substance: REMDESIVIR
     Dosage: 200 MG, QD (POWDER FOR SOLUTION INTRAVENOUS)
     Route: 042
     Dates: start: 20230927, end: 20230928
  3. DOMPERIDONE [Concomitant]
     Active Substance: DOMPERIDONE
  4. FAMOTIDINE [Concomitant]
     Active Substance: FAMOTIDINE
  5. METOCLOPRAMIDE [Concomitant]
     Active Substance: METOCLOPRAMIDE
  6. PANTOPRAZOLE [Concomitant]
     Active Substance: PANTOPRAZOLE
  7. SOLIFENACIN [Concomitant]
     Active Substance: SOLIFENACIN
  8. TRAMADOL HYDROCHLORIDE [Concomitant]
     Active Substance: TRAMADOL HYDROCHLORIDE
  9. METOCLOPRAMIDE HYDROCHLORIDE [Concomitant]
     Active Substance: METOCLOPRAMIDE HYDROCHLORIDE
  10. SOLIFENACIN SUCCINATE [Concomitant]
     Active Substance: SOLIFENACIN SUCCINATE

REACTIONS (11)
  - Altered state of consciousness [Recovered/Resolved]
  - Bradycardia [Recovered/Resolved]
  - Long QT syndrome [Recovered/Resolved]
  - Syncope [Recovered/Resolved]
  - Neurogenic shock [Unknown]
  - Chest pain [Recovered/Resolved]
  - Dizziness [Recovered/Resolved]
  - Drug hypersensitivity [Recovered/Resolved]
  - Eye movement disorder [Recovered/Resolved]
  - Nausea [Recovered/Resolved]
  - Tremor [Recovered/Resolved]

NARRATIVE: CASE EVENT DATE: 20230928
